FAERS Safety Report 19438918 (Version 1)
Quarter: 2021Q2

REPORT INFORMATION
  Report Type: Report from Study
  Country: AU (occurrence: AU)
  Receive Date: 20210618
  Receipt Date: 20210618
  Transmission Date: 20210717
  Serious: Yes (Other)
  Sender: FDA-Public Use
  Company Number: AU-TAKEDA-2021TUS037861

PATIENT
  Sex: Male

DRUGS (1)
  1. BORTEZOMIB. [Suspect]
     Active Substance: BORTEZOMIB
     Indication: PRIMARY AMYLOIDOSIS
     Dosage: 1.3 MILLIGRAM/SQ. METER, 1/WEEK
     Route: 065

REACTIONS (3)
  - Chronic kidney disease [Unknown]
  - Product use in unapproved indication [Unknown]
  - Off label use [Unknown]
